FAERS Safety Report 20848404 (Version 3)
Quarter: 2022Q4

REPORT INFORMATION
  Report Type: Spontaneous
  Country: US (occurrence: US)
  Receive Date: 20220519
  Receipt Date: 20221220
  Transmission Date: 20230112
  Serious: No
  Sender: FDA-Public Use
  Company Number: US-BRISTOL-MYERS SQUIBB COMPANY-2022-026717

PATIENT
  Age: 73 Year
  Sex: Female

DRUGS (1)
  1. POMALYST [Suspect]
     Active Substance: POMALIDOMIDE
     Indication: Plasma cell myeloma
     Dosage: FREQUENCY:TAKE 1 CAPSULE BY MOUTH EVERY DAY FOR 21 DAYS OUT OF 28 DAYS
     Route: 048
     Dates: start: 20200512

REACTIONS (1)
  - Product dose omission issue [Unknown]
